FAERS Safety Report 16084283 (Version 7)
Quarter: 2019Q3

REPORT INFORMATION
  Report Type: Report from Study
  Country: US (occurrence: US)
  Receive Date: 20190318
  Receipt Date: 20190805
  Transmission Date: 20191004
  Serious: Yes (Other)
  Sender: FDA-Public Use
  Company Number: US-PFIZER INC-2019072958

PATIENT
  Age: 53 Year
  Sex: Female

DRUGS (1)
  1. IBRANCE [Suspect]
     Active Substance: PALBOCICLIB
     Indication: BREAST CANCER FEMALE
     Dosage: 125 MG, CYCLIC (DAILY 21 DAYS ON AND 7 DAYS OFF)
     Route: 048
     Dates: start: 20190129

REACTIONS (10)
  - Chest discomfort [Recovered/Resolved]
  - Constipation [Unknown]
  - Cellulitis [Recovered/Resolved]
  - Product dose omission [Unknown]
  - Nausea [Unknown]
  - Leukopenia [Not Recovered/Not Resolved]
  - Muscle spasms [Unknown]
  - Fatigue [Recovering/Resolving]
  - Bone marrow failure [Not Recovered/Not Resolved]
  - Abdominal discomfort [Recovered/Resolved]

NARRATIVE: CASE EVENT DATE: 2019
